FAERS Safety Report 4447918-1 (Version None)
Quarter: 2004Q3

REPORT INFORMATION
  Report Type: 
  Country: None (occurrence: None)
  Receive Date: 20040819
  Receipt Date: 20040421
  Transmission Date: 20050211
  Serious: Yes (Disabling)
  Sender: FDA-Public Use
  Company Number: 2004216287US

PATIENT
  Age: 52 Year
  Sex: Female
  Weight: 59 kg

DRUGS (1)
  1. ROGAINE [Suspect]
     Indication: HYPOTRICHOSIS
     Dosage: 1 ML, ONCE, TOPICAL
     Route: 061
     Dates: start: 20040420, end: 20040420

REACTIONS (2)
  - HAIR TEXTURE ABNORMAL [None]
  - PAIN OF SKIN [None]
